FAERS Safety Report 18374856 (Version 1)
Quarter: 2020Q4

REPORT INFORMATION
  Report Type: Report from Study
  Country: None (occurrence: ZA)
  Receive Date: 20201013
  Receipt Date: 20201013
  Transmission Date: 20210114
  Serious: Yes (Hospitalization)
  Sender: FDA-Public Use
  Company Number: ZA-ABBVIE-20K-143-3604041-00

PATIENT
  Age: 35 Year
  Sex: Female

DRUGS (3)
  1. AZASAN [Concomitant]
     Active Substance: AZATHIOPRINE
     Indication: CROHN^S DISEASE
     Route: 048
     Dates: end: 2020
  2. AZASAN [Concomitant]
     Active Substance: AZATHIOPRINE
     Dosage: DOSE INCREASED
     Route: 048
     Dates: start: 2020
  3. HUMIRA [Suspect]
     Active Substance: ADALIMUMAB
     Indication: CROHN^S DISEASE
     Route: 058
     Dates: start: 2010

REACTIONS (1)
  - Intestinal stenosis [Recovering/Resolving]

NARRATIVE: CASE EVENT DATE: 20200928
